FAERS Safety Report 10420949 (Version 2)
Quarter: 2014Q4

REPORT INFORMATION
  Report Type: Spontaneous
  Country: US (occurrence: None)
  Receive Date: 20140714
  Receipt Date: 20141015
  Transmission Date: 20150528
  Serious: Yes (Other)
  Sender: FDA-Public Use
  Company Number: 2014US003305

PATIENT
  Age: 57 Year
  Sex: Female
  Weight: 115 kg

DRUGS (1)
  1. ICLUSIG [Suspect]
     Active Substance: PONATINIB
     Indication: CHRONIC MYELOID LEUKAEMIA
     Route: 048
     Dates: start: 20131007, end: 20131028

REACTIONS (2)
  - Blood pressure increased [None]
  - Rash [None]

NARRATIVE: CASE EVENT DATE: 201310
